FAERS Safety Report 25525768 (Version 1)
Quarter: 2025Q3

REPORT INFORMATION
  Report Type: Spontaneous
  Country: US (occurrence: US)
  Receive Date: 20250707
  Receipt Date: 20250707
  Transmission Date: 20251020
  Serious: No
  Sender: FRESENIUS KABI
  Company Number: US-FreseniusKabi-FK202508685

PATIENT
  Sex: Male

DRUGS (12)
  1. FLUOROURACIL [Suspect]
     Active Substance: FLUOROURACIL
     Indication: Pancreatic carcinoma
     Dosage: FOA: INJECTION?1ST CYCLE?DOSE: ASKED BUT UNKNOWN, FREQUENCY EVERY 2 WEEKS VIA PUMP THAT RUNS FOR 46
     Dates: start: 20250520
  2. FLUOROURACIL [Suspect]
     Active Substance: FLUOROURACIL
     Dosage: FOA: INJECTION?2ND CYCLE?DOSE: ASKED BUT UNKNOWN, FREQUENCY EVERY 2 WEEKS VIA PUMP THAT RUNS FOR 46
     Dates: start: 20250603
  3. FLUOROURACIL [Suspect]
     Active Substance: FLUOROURACIL
     Dosage: FOA: INJECTION?3RD CYCLE?DOSE: ASKED BUT UNKNOWN, FREQUENCY EVERY 2 WEEKS VIA PUMP THAT RUNS FOR 46
     Dates: start: 20250617
  4. OXALIPLATIN [Suspect]
     Active Substance: OXALIPLATIN
     Indication: Pancreatic carcinoma
     Dosage: FOLFIRINOX?1ST CYCLE?DOSE ASKED BUT UNKNOWN?ROA: VIA CHEST CHEMO PORT
     Dates: start: 20250520
  5. OXALIPLATIN [Suspect]
     Active Substance: OXALIPLATIN
     Dosage: FOLFIRINOX?2ND CYCLE?DOSE ASKED BUT UNKNOWN?ROA: VIA CHEST CHEMO PORT
     Dates: start: 20250603
  6. OXALIPLATIN [Suspect]
     Active Substance: OXALIPLATIN
     Dosage: FOLFIRINOX?3RD CYCLE?DOSE ASKED BUT UNKNOWN?ROA: VIA CHEST CHEMO PORT
     Dates: start: 20250617
  7. IRINOTECAN [Suspect]
     Active Substance: IRINOTECAN
     Indication: Pancreatic carcinoma
     Dosage: FOLFIRINOX?1ST CYCLE?DOSE ASKED BUT UNKNOWN?ROA: VIA CHEST CHEMO PORT
     Dates: start: 20250520
  8. IRINOTECAN [Suspect]
     Active Substance: IRINOTECAN
     Dosage: FOLFIRINOX?2ND CYCLE?DOSE ASKED BUT UNKNOWN?ROA: VIA CHEST CHEMO PORT
     Dates: start: 20250603
  9. IRINOTECAN [Suspect]
     Active Substance: IRINOTECAN
     Dosage: FOLFIRINOX?3RD CYCLE?DOSE ASKED BUT UNKNOWN?ROA: VIA CHEST CHEMO PORT
     Dates: start: 20250617
  10. LEUCOVORIN CALCIUM [Suspect]
     Active Substance: LEUCOVORIN CALCIUM
     Indication: Pancreatic carcinoma
     Dates: start: 20250520
  11. LEUCOVORIN CALCIUM [Suspect]
     Active Substance: LEUCOVORIN CALCIUM
     Dates: start: 20250603
  12. LEUCOVORIN CALCIUM [Suspect]
     Active Substance: LEUCOVORIN CALCIUM
     Dates: start: 20250617

REACTIONS (7)
  - Sneezing [Recovered/Resolved]
  - Nausea [Recovered/Resolved]
  - Hiccups [Recovered/Resolved]
  - Off label use [Unknown]
  - Chest pain [Recovered/Resolved]
  - Vomiting [Recovered/Resolved]
  - Weight decreased [Unknown]

NARRATIVE: CASE EVENT DATE: 20250520
